FAERS Safety Report 18445641 (Version 1)
Quarter: 2020Q4

REPORT INFORMATION
  Report Type: Spontaneous
  Country: US (occurrence: US)
  Receive Date: 20201029
  Receipt Date: 20201029
  Transmission Date: 20210114
  Serious: Yes (Other)
  Sender: FDA-Public Use
  Company Number: None

PATIENT
  Age: 42 Year
  Sex: Female

DRUGS (1)
  1. LIDOCAINE HCL INJECTION PRESERVATIVE FREE [Suspect]
     Active Substance: LIDOCAINE HYDROCHLORIDE
     Indication: MIGRAINE
     Dosage: ?          OTHER FREQUENCY:X1;OTHER ROUTE:INTRAOCCIPITAL?
     Dates: start: 20201006, end: 20201006

REACTIONS (11)
  - Pain [None]
  - Photophobia [None]
  - Feeling hot [None]
  - Visual impairment [None]
  - Injection site pain [None]
  - Neck pain [None]
  - Headache [None]
  - Swelling [None]
  - Dizziness [None]
  - Nausea [None]
  - Vomiting [None]

NARRATIVE: CASE EVENT DATE: 20201006
